FAERS Safety Report 14816464 (Version 5)
Quarter: 2020Q3

REPORT INFORMATION
  Report Type: Report from Study
  Country: FR (occurrence: FR)
  Receive Date: 20180426
  Receipt Date: 20190318
  Transmission Date: 20201104
  Serious: Yes (Death, Hospitalization)
  Sender: FDA-Public Use
  Company Number: FR-ASTRAZENECA-2018SE39326

PATIENT
  Age: 891 Month
  Sex: Male

DRUGS (22)
  1. ETOPOSIDE. [Suspect]
     Active Substance: ETOPOSIDE
     Indication: SMALL CELL LUNG CANCER
     Dosage: 96.15 MG/M2
     Route: 065
     Dates: start: 20180321, end: 20180321
  2. AMLODIPINE [Concomitant]
     Active Substance: AMLODIPINE BESYLATE
     Indication: HYPERTENSION
     Route: 048
     Dates: start: 20180306
  3. PARACETAMOL [Concomitant]
     Active Substance: ACETAMINOPHEN
     Indication: CANCER PAIN
     Route: 048
     Dates: start: 20180306
  4. TIORFAN [Concomitant]
     Active Substance: RACECADOTRIL
     Indication: DIARRHOEA
     Dosage: 100.0MG AS REQUIRED
     Route: 048
     Dates: start: 20180318, end: 20180323
  5. STILNOX [Concomitant]
     Active Substance: ZOLPIDEM TARTRATE
     Indication: INSOMNIA
     Route: 048
     Dates: start: 20180318
  6. DURVALUMAB. [Suspect]
     Active Substance: DURVALUMAB
     Indication: SMALL CELL LUNG CANCER
     Route: 042
     Dates: start: 20180319, end: 20180319
  7. CARBOPLATIN. [Suspect]
     Active Substance: CARBOPLATIN
     Indication: SMALL CELL LUNG CANCER
     Dosage: 5.00 AUC
     Route: 065
     Dates: start: 20180319, end: 20180319
  8. ACTISKENAN [Concomitant]
     Active Substance: MORPHINE SULFATE
     Dosage: 5.0MG AS REQUIRED
     Route: 048
     Dates: start: 20180306
  9. SODIUM ALGINATE [Concomitant]
     Active Substance: SODIUM ALGINATE
     Indication: ABDOMINAL PAIN UPPER
     Route: 048
     Dates: start: 20180326
  10. EMEND APREPITANT [Concomitant]
     Indication: PREMEDICATION
     Dosage: 125.0MG ONCE/SINGLE ADMINISTRATION
     Route: 048
     Dates: start: 20180319, end: 20180319
  11. DEXAMETHASONE. [Concomitant]
     Active Substance: DEXAMETHASONE
     Indication: PREMEDICATION
     Dosage: 12.0MG ONCE/SINGLE ADMINISTRATION
     Route: 042
     Dates: start: 20180319, end: 20180319
  12. EMEND APREPITANT [Concomitant]
     Indication: PREMEDICATION
     Dosage: 80.0MG ONCE/SINGLE ADMINISTRATION
     Route: 048
     Dates: start: 20180320, end: 20180321
  13. DIFFU K [Concomitant]
     Active Substance: POTASSIUM CHLORIDE
     Indication: HYPOKALAEMIA
     Dosage: 600.0MG AS REQUIRED
     Route: 048
     Dates: start: 20180319
  14. ONDANSETRON [Concomitant]
     Active Substance: ONDANSETRON
     Indication: PREMEDICATION
     Dosage: 8.0MG ONCE/SINGLE ADMINISTRATION
     Route: 042
     Dates: start: 20180319, end: 20180319
  15. PANTOPRAZOLE [Concomitant]
     Active Substance: PANTOPRAZOLE
     Indication: ABDOMINAL PAIN UPPER
     Route: 048
     Dates: start: 20180326
  16. LARGACTIL 4% [Concomitant]
     Indication: ABDOMINAL PAIN UPPER
     Dosage: 5.00 OTHER DROP TID
     Route: 048
     Dates: start: 20180326
  17. ETOPOSIDE. [Suspect]
     Active Substance: ETOPOSIDE
     Indication: SMALL CELL LUNG CANCER
     Dosage: 96.15 MG/M2
     Route: 065
     Dates: start: 20180319, end: 20180319
  18. ETOPOSIDE. [Suspect]
     Active Substance: ETOPOSIDE
     Indication: SMALL CELL LUNG CANCER
     Dosage: 96.15 MG/M2
     Route: 065
     Dates: start: 20180320, end: 20180320
  19. DIAZEPAM. [Concomitant]
     Active Substance: DIAZEPAM
     Indication: ANXIETY
     Route: 048
     Dates: start: 20180308
  20. TREMELIMUMAB. [Suspect]
     Active Substance: TREMELIMUMAB
     Indication: SMALL CELL LUNG CANCER
     Route: 042
     Dates: start: 20180319, end: 20180319
  21. MOVICOL [Concomitant]
     Active Substance: POLYETHYLENE GLYCOL 3350\POTASSIUM CHLORIDE\SODIUM BICARBONATE\SODIUM CHLORIDE
     Indication: CONSTIPATION
     Dosage: 1 PACK PRN
     Route: 048
     Dates: start: 20180306
  22. GLUCOSE [Concomitant]
     Active Substance: DEXTROSE
     Indication: DEHYDRATION
     Dosage: 2500 ML
     Route: 042
     Dates: start: 20180318

REACTIONS (2)
  - General physical health deterioration [Fatal]
  - Multiple organ dysfunction syndrome [Fatal]

NARRATIVE: CASE EVENT DATE: 20180327
